FAERS Safety Report 9130076 (Version 1)
Quarter: 2013Q1

REPORT INFORMATION
  Report Type: Report from Study
  Country: DE (occurrence: DE)
  Receive Date: 20130228
  Receipt Date: 20130228
  Transmission Date: 20140127
  Serious: Yes (Hospitalization, Disabling)
  Sender: FDA-Public Use
  Company Number: PHHO2013DE003067

PATIENT
  Age: 60 Year
  Sex: Male
  Weight: 77 kg

DRUGS (9)
  1. ACETYLSALICYLIC ACID [Suspect]
     Indication: CORONARY ARTERY DISEASE
     Dosage: 100 MG, QD
     Dates: start: 20120427
  2. BLINDED ACZ885 [Suspect]
     Indication: CARDIOVASCULAR EVENT PROPHYLAXIS
     Dosage: CODE NOT BROKEN
     Route: 058
     Dates: start: 20120823
  3. BLINDED NO TREATMENT RECEIVED [Suspect]
     Indication: CARDIOVASCULAR EVENT PROPHYLAXIS
     Dosage: CODE NOT BROKEN
     Route: 058
     Dates: start: 20120823
  4. BLINDED PLACEBO [Suspect]
     Indication: CARDIOVASCULAR EVENT PROPHYLAXIS
     Dosage: CODE NOT BROKEN
     Route: 058
     Dates: start: 20120823
  5. AMLODIPINE [Concomitant]
     Indication: ORTHOSTATIC HYPERTENSION
     Dosage: 5 MG, QD
     Dates: start: 20120427
  6. METOPROLOL [Concomitant]
     Indication: CORONARY ARTERY DISEASE
     Dosage: 95 MG, QD
     Dates: start: 20120427
  7. RAMIPRIL [Concomitant]
     Indication: ORTHOSTATIC HYPERTENSION
     Dosage: 7.5 MG, QD
     Dates: start: 20120427
  8. SIMVASTATIN [Concomitant]
     Indication: HYPERLIPIDAEMIA
     Dosage: 100 MG, QD
     Dates: start: 20120427
  9. CLOPIDOGREL [Concomitant]
     Indication: CORONARY ARTERY DISEASE
     Dosage: 75 MG, QD
     Dates: start: 20120427

REACTIONS (1)
  - Oesophagitis [Recovered/Resolved]
